FAERS Safety Report 5152895-4 (Version None)
Quarter: 2006Q4

REPORT INFORMATION
  Report Type: 
  Country: None (occurrence: None)
  Receive Date: 20061117
  Receipt Date: 20061108
  Transmission Date: 20070319
  Serious: Yes (Death)
  Sender: FDA-Public Use
  Company Number: US-JNJFOC-20061102343

PATIENT
  Sex: Male
  Weight: 90.72 kg

DRUGS (2)
  1. DURAGESIC-100 [Suspect]
     Indication: CANCER PAIN
     Route: 062
  2. MORPHINE [Concomitant]
     Indication: CANCER PAIN
     Route: 042

REACTIONS (1)
  - DEATH [None]
